FAERS Safety Report 11893577 (Version 6)
Quarter: 2016Q2

REPORT INFORMATION
  Report Type: Spontaneous
  Country: US (occurrence: US)
  Receive Date: 20160106
  Receipt Date: 20160421
  Transmission Date: 20160815
  Serious: Yes (Death, Hospitalization)
  Sender: FDA-Public Use
  Company Number: US-ACTELION-A-NJ2015-129443

PATIENT
  Age: 50 Year
  Sex: Female

DRUGS (1)
  1. OPSUMIT [Suspect]
     Active Substance: MACITENTAN
     Indication: PULMONARY ARTERIAL HYPERTENSION
     Dosage: 10 MG, QD
     Route: 048
     Dates: start: 20141021, end: 20160201

REACTIONS (17)
  - Pain [Unknown]
  - Mouth swelling [Unknown]
  - Urinary tract infection [Unknown]
  - Intentional overdose [Unknown]
  - Swollen tongue [Unknown]
  - Pulmonary arterial hypertension [Fatal]
  - Condition aggravated [Fatal]
  - Pulmonary oedema [Unknown]
  - Syncope [Unknown]
  - Cardiac failure congestive [Fatal]
  - Haematemesis [Unknown]
  - Abdominal distension [Unknown]
  - Oxygen saturation decreased [Unknown]
  - Sepsis [Fatal]
  - Generalised oedema [Unknown]
  - Peripheral swelling [Unknown]
  - Dyspnoea [Unknown]

NARRATIVE: CASE EVENT DATE: 20151225
